FAERS Safety Report 13367198 (Version 1)
Quarter: 2017Q1

REPORT INFORMATION
  Report Type: Spontaneous
  Country: US (occurrence: US)
  Receive Date: 20170324
  Receipt Date: 20170324
  Transmission Date: 20170429
  Serious: Yes (Other)
  Sender: FDA-Public Use
  Company Number: US-LPDUSPRD-20170308

PATIENT
  Sex: Male

DRUGS (3)
  1. HEPARIN [Suspect]
     Active Substance: HEPARIN SODIUM
     Dosage: 70 IU/KG
     Route: 042
  2. DEHYDRATED ALCOHOL [Suspect]
     Active Substance: ALCOHOL
     Dosage: 6 ML
     Route: 013
  3. HEPARINIZED NORMAL SALINE [Concomitant]
     Dosage: 0.3-0.5 ML

REACTIONS (2)
  - Hemiparesis [Unknown]
  - Aphasia [Unknown]
